FAERS Safety Report 9466519 (Version 2)
Quarter: 2013Q3

REPORT INFORMATION
  Report Type: Report from Study
  Country: US (occurrence: US)
  Receive Date: 20130820
  Receipt Date: 20130820
  Transmission Date: 20140515
  Serious: Yes (Hospitalization)
  Sender: FDA-Public Use
  Company Number: US-ACTELION-A-US2013-86633

PATIENT
  Age: 72 Year
  Sex: Female

DRUGS (17)
  1. TRACLEER [Suspect]
     Indication: PULMONARY ARTERIAL HYPERTENSION
     Dosage: 125 MG, BID
     Route: 048
     Dates: start: 2011
  2. TRACLEER [Suspect]
     Dosage: 62.5 UNK, UNK
     Route: 048
     Dates: start: 2011
  3. SILDENAFIL [Concomitant]
     Dosage: 20 MG, TID
     Dates: start: 201001
  4. COUMADIN [Concomitant]
     Dosage: UNK
     Dates: start: 1997
  5. OXYGEN [Concomitant]
  6. LASIX [Concomitant]
     Dosage: 40 MG, UNK
     Dates: start: 1997
  7. LISINOPRIL [Concomitant]
     Dosage: 20 MG, QD
     Dates: start: 2000
  8. CALCIUM [Concomitant]
     Dosage: 1200 MG, UNK
     Dates: start: 2001
  9. POTASSIUM [Concomitant]
     Dosage: 20 MEQ, BID
     Dates: start: 2001
  10. MULTIVITAMIN [Concomitant]
     Dosage: UNK
     Dates: start: 2007
  11. PRAVACHOL [Concomitant]
     Dosage: 40 MG, UNK
     Dates: start: 2000
  12. LOPRESSOR [Concomitant]
     Dosage: 50 MG, UNK
     Dates: start: 1997
  13. ASPIRIN [Concomitant]
     Dosage: 81 MG, QD
     Dates: start: 2007
  14. MUCINEX [Concomitant]
     Dosage: 400 MG, QD
     Dates: start: 2007
  15. PRILOSEC [Concomitant]
     Dosage: 20 MG, BID
     Dates: start: 2010
  16. LEVOTHYROXINE [Concomitant]
     Dosage: 0.125 MCG, QD
     Dates: start: 1997
  17. PAXIL [Concomitant]
     Dosage: 30 MG, UNK
     Dates: start: 2010

REACTIONS (5)
  - Chronic obstructive pulmonary disease [Not Recovered/Not Resolved]
  - Cardiac failure congestive [Not Recovered/Not Resolved]
  - Malaise [Recovered/Resolved]
  - Fatigue [Recovering/Resolving]
  - Decreased appetite [Recovered/Resolved]
